FAERS Safety Report 5015103-0 (Version None)
Quarter: 2006Q2

REPORT INFORMATION
  Report Type: 
  Country: None (occurrence: None)
  Receive Date: 20060530
  Receipt Date: 20060516
  Transmission Date: 20061013
  Serious: Yes (Hospitalization, Other)
  Sender: FDA-Public Use
  Company Number: DEU-2005-0001608

PATIENT
  Age: 60 Year
  Sex: Female
  Weight: 105 kg

DRUGS (10)
  1. OXY/NALOXONE         (CODE BROKEN OXY/NALOX HCL CR TA [Suspect]
     Indication: BACK PAIN
     Dosage: 20 MG, DAILY, ORAL
     Route: 048
     Dates: start: 20050503, end: 20051013
  2. OXYGESIC KAPSELN (OXYCODONE HYDROCHLORIDE) [Suspect]
     Indication: BACK PAIN
     Dosage: 5 MG, PRN, ORAL
     Route: 048
     Dates: start: 20050413
  3. ACETYLSALICYLIC ACID SRT [Concomitant]
  4. METOPROLOL SUCCINATE [Concomitant]
  5. RAMIPRIL [Concomitant]
  6. INSULIN [Concomitant]
  7. TRAMADOL HCL [Concomitant]
  8. OMEPRAZOLE [Concomitant]
  9. KEIMAX (CEFTIBUTEN) [Concomitant]
  10. ISCOVER (CLOPIDOGREL SULFATE) [Concomitant]

REACTIONS (4)
  - ANGINA UNSTABLE [None]
  - BLOOD PRESSURE DECREASED [None]
  - CORONARY ARTERY DISEASE [None]
  - CORONARY ARTERY STENOSIS [None]
